FAERS Safety Report 6626127-1 (Version None)
Quarter: 2010Q1

REPORT INFORMATION
  Report Type: 
  Country: None (occurrence: None)
  Receive Date: 20100310
  Receipt Date: 20100303
  Transmission Date: 20100710
  Serious: Yes (Life-Threatening)
  Sender: FDA-Public Use
  Company Number: B0638747A

PATIENT
  Sex: Female

DRUGS (1)
  1. AUGMENTIN [Suspect]
     Indication: ALLERGY TEST
     Dosage: 1G PER DAY
     Route: 048
     Dates: start: 20091110, end: 20091110

REACTIONS (2)
  - DYSPNOEA [None]
  - URTICARIA [None]
